FAERS Safety Report 9763282 (Version 2)
Quarter: 2014Q2

REPORT INFORMATION
  Report Type: Spontaneous
  Country: US (occurrence: US)
  Receive Date: 20131216
  Receipt Date: 20140619
  Transmission Date: 20141212
  Serious: No
  Sender: FDA-Public Use
  Company Number: US-BIOGENIDEC-2013BI104801

PATIENT
  Age: 54 Year
  Sex: Male

DRUGS (12)
  1. TECFIDERA [Suspect]
     Indication: MULTIPLE SCLEROSIS
     Route: 048
     Dates: start: 20130612, end: 20130618
  2. TECFIDERA [Suspect]
     Indication: MULTIPLE SCLEROSIS
     Route: 048
     Dates: start: 20130619
  3. TRILEPTAL [Concomitant]
  4. PROMETHAZINE HCL [Concomitant]
  5. OXYCONTIN [Concomitant]
  6. OMEPRAZOLE [Concomitant]
  7. METOPROLOL SUCCINATE ER [Concomitant]
  8. MAXALT [Concomitant]
  9. HYDROXYZINE HCL [Concomitant]
  10. DIAZEPAM [Concomitant]
  11. BENADRYL [Concomitant]
  12. BACLOFEN [Concomitant]

REACTIONS (3)
  - Hyperhidrosis [Not Recovered/Not Resolved]
  - Flushing [Not Recovered/Not Resolved]
  - Nausea [Not Recovered/Not Resolved]
